FAERS Safety Report 5697311-9 (Version None)
Quarter: 2008Q2

REPORT INFORMATION
  Report Type: 
  Country: None (occurrence: None)
  Receive Date: 20080404
  Receipt Date: 20080404
  Transmission Date: 20081010
  Serious: No
  Sender: FDA-Public Use
  Company Number: None

PATIENT
  Age: 44 Year
  Sex: Male
  Weight: 60.782 kg

DRUGS (1)
  1. BREVITAL SODIUM [Suspect]
     Indication: SEDATIVE THERAPY
     Dosage: 60MG X1 IV
     Route: 042
     Dates: start: 20080307

REACTIONS (3)
  - POSTURE ABNORMAL [None]
  - TREMOR [None]
  - UNRESPONSIVE TO STIMULI [None]
